FAERS Safety Report 19749831 (Version 2)
Quarter: 2023Q2

REPORT INFORMATION
  Report Type: Spontaneous
  Country: CA (occurrence: CA)
  Receive Date: 20210826
  Receipt Date: 20230404
  Transmission Date: 20230721
  Serious: Yes (Hospitalization, Other)
  Sender: FDA-Public Use
  Company Number: CA-ACCORD-220221

PATIENT
  Age: 51 Year
  Sex: Male

DRUGS (7)
  1. CLOZAPINE [Interacting]
     Active Substance: CLOZAPINE
     Indication: Schizoaffective disorder
     Dosage: REDUCED TO 300 MG/D AND RESTARTED ON 150 MG/D
  2. PFIZER-BIONTECH COVID-19 VACCINE [Interacting]
     Active Substance: TOZINAMERAN
     Indication: COVID-19 immunisation
  3. DIVALPROEX SODIUM [Concomitant]
     Active Substance: DIVALPROEX SODIUM
  4. FENOFIBRATE [Concomitant]
     Active Substance: FENOFIBRATE
  5. LINAGLIPTIN [Concomitant]
     Active Substance: LINAGLIPTIN
  6. METFORMIN [Concomitant]
     Active Substance: METFORMIN HYDROCHLORIDE
  7. PANTOPRAZOLE [Concomitant]
     Active Substance: PANTOPRAZOLE

REACTIONS (8)
  - Sedation complication [Unknown]
  - Drug level increased [Recovered/Resolved]
  - Drug interaction [Unknown]
  - Incontinence [Recovered/Resolved]
  - Fall [Unknown]
  - Delirium [Recovered/Resolved]
  - Toxicity to various agents [Unknown]
  - Condition aggravated [Recovered/Resolved]
